FAERS Safety Report 8149025 (Version 5)
Quarter: 2015Q4

REPORT INFORMATION
  Report Type: Spontaneous
  Country: US (occurrence: US)
  Receive Date: 20110922
  Receipt Date: 20151023
  Transmission Date: 20160305
  Serious: No
  Sender: FDA-Public Use
  Company Number: US-ASTRAZENECA-2011SE09752

PATIENT
  Age: 583 Month
  Sex: Female
  Weight: 72.6 kg

DRUGS (6)
  1. ALEVE [Concomitant]
     Active Substance: NAPROXEN SODIUM
     Indication: HEADACHE
  2. SEROQUEL [Suspect]
     Active Substance: QUETIAPINE FUMARATE
     Indication: BIPOLAR I DISORDER
     Dosage: 100 MG IN THE MORNING AND 200 MG IN THE EVENING FOR A TOTAL OF 300 MG DAILY
     Route: 048
     Dates: end: 201312
  3. SEROQUEL [Suspect]
     Active Substance: QUETIAPINE FUMARATE
     Indication: BIPOLAR I DISORDER
     Route: 048
     Dates: start: 201312
  4. SEROQUEL [Suspect]
     Active Substance: QUETIAPINE FUMARATE
     Indication: BIPOLAR I DISORDER
     Route: 048
  5. SEROQUEL [Suspect]
     Active Substance: QUETIAPINE FUMARATE
     Indication: BIPOLAR I DISORDER
     Route: 048
     Dates: start: 201312
  6. SEROQUEL [Suspect]
     Active Substance: QUETIAPINE FUMARATE
     Indication: BIPOLAR I DISORDER
     Route: 048

REACTIONS (8)
  - Influenza like illness [Unknown]
  - Abdominal pain upper [Unknown]
  - Hypophagia [Not Recovered/Not Resolved]
  - Off label use [Unknown]
  - Insomnia [Not Recovered/Not Resolved]
  - Adverse event [Unknown]
  - Panic attack [Unknown]
  - Drug dose omission [Not Recovered/Not Resolved]

NARRATIVE: CASE EVENT DATE: 201312
